FAERS Safety Report 4868680-4 (Version None)
Quarter: 2005Q4

REPORT INFORMATION
  Report Type: 
  Country: None (occurrence: None)
  Receive Date: 20051223
  Receipt Date: 20051215
  Transmission Date: 20060501
  Serious: Yes (Death)
  Sender: FDA-Public Use
  Company Number: 2005165189

PATIENT
  Age: 60 Year
  Sex: Male
  Weight: 77.1115 kg

DRUGS (8)
  1. LYRICA [Suspect]
     Indication: NEURALGIA
     Dosage: 150 MG (50 MG, 3 IN 1 D),
     Dates: start: 20051101
  2. SENSIPAR (CINACALCET HYDROCHLORIDE) [Concomitant]
  3. LANTHANUM CARBONATE (LANTHANUM CARBONATE) [Concomitant]
  4. KLOR-CON [Concomitant]
  5. PREDNISOLONE [Concomitant]
  6. VITAMIN B12 [Concomitant]
  7. VITAMIN B6 (VITAMIN B6) [Concomitant]
  8. ALL OTHER THERAPEUTIC PRODUCTS (ALL OTHER THERAPEUTIC PRODUCTS) [Concomitant]

REACTIONS (2)
  - ARTERIOSCLEROSIS [None]
  - OVERDOSE [None]
